FAERS Safety Report 5005803-0 (Version None)
Quarter: 2006Q2

REPORT INFORMATION
  Report Type: 
  Country: None (occurrence: None)
  Receive Date: 20060516
  Receipt Date: 20060503
  Transmission Date: 20061013
  Serious: No
  Sender: FDA-Public Use
  Company Number: US200605000879

PATIENT
  Age: 52 Year
  Sex: Female

DRUGS (2)
  1. CYMBALTA [Suspect]
     Indication: DEPRESSION
     Dosage: 90 MG, EACH MORNING, UNK
     Dates: start: 20050101
  2. XANAX      /USA/(ALPRAZOLAM) [Concomitant]

REACTIONS (3)
  - COLONOSCOPY [None]
  - DRUG INEFFECTIVE [None]
  - HEPATIC STEATOSIS [None]
